FAERS Safety Report 5584645-1 (Version None)
Quarter: 2008Q1

REPORT INFORMATION
  Report Type: 
  Country: None (occurrence: None)
  Receive Date: 20080108
  Receipt Date: 20071227
  Transmission Date: 20080703
  Serious: Yes (Hospitalization, Disabling, Other)
  Sender: FDA-Public Use
  Company Number: US-PFIZER INC-2007108743

PATIENT
  Sex: Female
  Weight: 67.272 kg

DRUGS (3)
  1. DILANTIN [Suspect]
     Indication: CONVULSION
  2. DILANTIN [Suspect]
     Indication: CONVULSION
  3. ALL OTHER THERAPEUTIC PRODUCTS [Concomitant]

REACTIONS (9)
  - ABASIA [None]
  - ABDOMINAL MASS [None]
  - ANTICONVULSANT DRUG LEVEL INCREASED [None]
  - CONVULSION [None]
  - DIZZINESS [None]
  - HERNIA [None]
  - MEMORY IMPAIRMENT [None]
  - SPINAL OPERATION [None]
  - ULCER [None]
